FAERS Safety Report 17417241 (Version 4)
Quarter: 2021Q2

REPORT INFORMATION
  Report Type: Spontaneous
  Country: US (occurrence: US)
  Receive Date: 20200214
  Receipt Date: 20210623
  Transmission Date: 20210716
  Serious: No
  Sender: FDA-Public Use
  Company Number: US-ASTRAZENECA-2020SE09766

PATIENT
  Age: 38 Year
  Sex: Female
  Weight: 70.8 kg

DRUGS (3)
  1. ALBUTEROL. [Concomitant]
     Active Substance: ALBUTEROL
  2. SYMBICORT [Suspect]
     Active Substance: BUDESONIDE\FORMOTEROL FUMARATE DIHYDRATE
     Indication: ASTHMA
     Dosage: 80/4.5 MCG,2 PUFFS TWO TIMES A DAY
     Route: 055
     Dates: start: 201909
  3. SINGULAIR [Concomitant]
     Active Substance: MONTELUKAST SODIUM

REACTIONS (4)
  - Product use issue [Unknown]
  - Device malfunction [Unknown]
  - Exposure during pregnancy [Unknown]
  - Intercepted medication error [Recovered/Resolved]
